FAERS Safety Report 8815026 (Version 2)
Quarter: 2014Q3

REPORT INFORMATION
  Report Type: Report from Study
  Country: US (occurrence: US)
  Receive Date: 20120928
  Receipt Date: 20140901
  Transmission Date: 20150326
  Serious: Yes (Other)
  Sender: FDA-Public Use
  Company Number: US-ROCHE-1126867

PATIENT
  Sex: Female
  Weight: 76 kg

DRUGS (3)
  1. AVASTIN [Suspect]
     Active Substance: BEVACIZUMAB
     Indication: BREAST CANCER FEMALE
     Route: 065
  2. AVASTIN [Suspect]
     Active Substance: BEVACIZUMAB
     Indication: BREAST CANCER METASTATIC
  3. TAXOL [Concomitant]
     Active Substance: PACLITAXEL

REACTIONS (13)
  - Gastrooesophageal reflux disease [Unknown]
  - Horner^s syndrome [Unknown]
  - Device related infection [Unknown]
  - Mediastinal disorder [Unknown]
  - Metastases to bone [Unknown]
  - Metastases to lung [Unknown]
  - Venous thrombosis [Unknown]
  - Metastases to spine [Unknown]
  - Radiation pneumonitis [Unknown]
  - Vertigo [Unknown]
  - Off label use [Unknown]
  - Post herpetic neuralgia [Unknown]
  - Hypertension [Unknown]
